FAERS Safety Report 14760452 (Version 1)
Quarter: 2018Q2

REPORT INFORMATION
  Report Type: Spontaneous
  Country: US (occurrence: US)
  Receive Date: 20180414
  Receipt Date: 20180414
  Transmission Date: 20180711
  Serious: No
  Sender: FDA-Public Use
  Company Number: US-009507513-1804USA001558

PATIENT
  Sex: Female
  Weight: 61.22 kg

DRUGS (1)
  1. NEXPLANON [Suspect]
     Active Substance: ETONOGESTREL
     Indication: CONTRACEPTION
     Dosage: 1 DF, EVERY 4 YEARS, LEFT ARM IMPLANT
     Route: 059
     Dates: start: 20170720

REACTIONS (6)
  - Menstruation irregular [Unknown]
  - Amenorrhoea [Recovered/Resolved]
  - Drug prescribing error [Unknown]
  - Menorrhagia [Unknown]
  - Polymenorrhoea [Unknown]
  - Abdominal pain lower [Unknown]

NARRATIVE: CASE EVENT DATE: 2017
